FAERS Safety Report 7120052-8 (Version None)
Quarter: 2010Q4

REPORT INFORMATION
  Report Type: 
  Country: None (occurrence: None)
  Receive Date: 20101123
  Receipt Date: 20101117
  Transmission Date: 20110411
  Serious: Yes (Hospitalization)
  Sender: FDA-Public Use
  Company Number: US-B.I. PHARMACEUTICALS,INC./RIDGEFIELD-2010-BP-12909BP

PATIENT
  Age: 74 Year
  Sex: Female

DRUGS (3)
  1. MIRAPEX [Suspect]
     Indication: RESTLESS LEGS SYNDROME
     Dosage: 0.375 MG
     Route: 048
     Dates: start: 20040101, end: 20100901
  2. SPIRIVA [Concomitant]
     Indication: ASTHMA
  3. SINGULAIR [Concomitant]
     Indication: ASTHMA

REACTIONS (5)
  - BLOOD POTASSIUM DECREASED [None]
  - DIZZINESS [None]
  - POSTOPERATIVE WOUND INFECTION [None]
  - RESTLESS LEGS SYNDROME [None]
  - SPINAL COMPRESSION FRACTURE [None]
